FAERS Safety Report 21179029 (Version 1)
Quarter: 2022Q3

REPORT INFORMATION
  Report Type: Spontaneous
  Country: US (occurrence: None)
  Receive Date: 20220805
  Receipt Date: 20220805
  Transmission Date: 20221026
  Serious: Yes (Hospitalization)
  Sender: FDA-Public Use
  Company Number: None

PATIENT
  Age: 35 Year
  Sex: Male
  Weight: 70.2 kg

DRUGS (6)
  1. DEXAMETHASONE [Suspect]
     Active Substance: DEXAMETHASONE
     Dates: end: 20220722
  2. DOXORUBICIN HYDROCHLORIDE [Suspect]
     Active Substance: DOXORUBICIN HYDROCHLORIDE
     Dates: end: 20220718
  3. METHOTREXATE [Suspect]
     Active Substance: METHOTREXATE
     Dates: end: 20220706
  4. ONCASPAR [Suspect]
     Active Substance: PEGASPARGASE
     Dates: end: 20220708
  5. RITUXIMAB [Suspect]
     Active Substance: RITUXIMAB
     Dates: end: 20220712
  6. VINCRISTINE SULFATE [Suspect]
     Active Substance: VINCRISTINE SULFATE
     Dates: end: 20220718

REACTIONS (3)
  - Nausea [None]
  - Vomiting [None]
  - Flank pain [None]

NARRATIVE: CASE EVENT DATE: 20220722
